FAERS Safety Report 19432546 (Version 1)
Quarter: 2021Q2

REPORT INFORMATION
  Report Type: Report from Study
  Country: JP (occurrence: JP)
  Receive Date: 20210617
  Receipt Date: 20210617
  Transmission Date: 20210717
  Serious: Yes (Death)
  Sender: FDA-Public Use
  Company Number: JP-PFIZER INC-2021677838

PATIENT

DRUGS (7)
  1. ETOPOSIDE. [Suspect]
     Active Substance: ETOPOSIDE
     Indication: B-CELL LYMPHOMA
     Dosage: 150 MG/M2, CYCLIC (WEEK 2)
     Route: 042
  2. PREDNISOLONE. [Suspect]
     Active Substance: PREDNISOLONE
     Indication: B-CELL LYMPHOMA
     Dosage: 40 MG, DAILY (WEEK 1,2,3,4 AND 5)
     Route: 048
     Dates: start: 200207
  3. CYCLOPHOSPHAMIDE. [Suspect]
     Active Substance: CYCLOPHOSPHAMIDE
     Indication: B-CELL LYMPHOMA
     Dosage: 300 MG/M2, CYCLIC (WEEK 1,3 AND 5)
     Route: 042
  4. MITOXANTRONE HCL [Suspect]
     Active Substance: MITOXANTRONE HYDROCHLORIDE
     Indication: B-CELL LYMPHOMA
     Dosage: 8 MG/M2, CYCLIC (WEEK 1,3 AND 5; AGED 70 YEARS)
     Route: 042
  5. BLEOMYCIN [Suspect]
     Active Substance: BLEOMYCIN SULFATE
     Indication: B-CELL LYMPHOMA
     Dosage: 10 MG/M2, CYCLIC (WEEK 4)
     Route: 042
  6. VINCRISTINE [Suspect]
     Active Substance: VINCRISTINE
     Indication: B-CELL LYMPHOMA
     Dosage: 2 MG/KG, CYCLIC (WEEK 2 AND 4)
     Route: 042
  7. FILGRASTIM [Concomitant]
     Active Substance: FILGRASTIM
     Dosage: 50 UG/M2
     Route: 058

REACTIONS (2)
  - Pneumonia cytomegaloviral [Fatal]
  - Interstitial lung disease [Fatal]
